FAERS Safety Report 24104333 (Version 1)
Quarter: 2024Q3

REPORT INFORMATION
  Report Type: Other
  Country: GB (occurrence: GB)
  Receive Date: 20240717
  Receipt Date: 20240717
  Transmission Date: 20241016
  Serious: Yes (Other)
  Sender: ASTELLAS
  Company Number: None

PATIENT
  Age: 78 Year
  Sex: Male

DRUGS (1)
  1. SOLIFENACIN [Suspect]
     Active Substance: SOLIFENACIN
     Indication: Product used for unknown indication
     Dosage: UNK UNK, UNKNOWN FREQ.
     Route: 065

REACTIONS (8)
  - Dizziness postural [Recovered/Resolved]
  - Syncope [Unknown]
  - Vision blurred [Unknown]
  - Diarrhoea [Unknown]
  - Dry mouth [Unknown]
  - Peripheral coldness [Unknown]
  - Cold sweat [Unknown]
  - Product communication issue [Unknown]

NARRATIVE: CASE EVENT DATE: 20240623
